FAERS Safety Report 5360080-6 (Version None)
Quarter: 2007Q2

REPORT INFORMATION
  Report Type: 
  Country: None (occurrence: None)
  Receive Date: 20070618
  Receipt Date: 20070222
  Transmission Date: 20071010
  Serious: No
  Sender: FDA-Public Use
  Company Number: US-ASTRAZENECA-2007UW03478

PATIENT
  Sex: Female
  Weight: 54.4 kg

DRUGS (1)
  1. FASLODEX [Suspect]
     Indication: BREAST CANCER METASTATIC
     Dosage: TWO 250 MG (5 ML)
     Route: 030

REACTIONS (2)
  - ACCIDENTAL OVERDOSE [None]
  - INJECTION SITE PAIN [None]
